FAERS Safety Report 5380787-4 (Version None)
Quarter: 2007Q3

REPORT INFORMATION
  Report Type: 
  Country: None (occurrence: None)
  Receive Date: 20070706
  Receipt Date: 20070629
  Transmission Date: 20080115
  Serious: Yes (Disabling)
  Sender: FDA-Public Use
  Company Number: B0477192A

PATIENT
  Age: 49 Year
  Sex: Male

DRUGS (18)
  1. LAMIVUDINE [Suspect]
     Indication: ACQUIRED IMMUNODEFICIENCY SYNDROME
     Dosage: 150MG TWICE PER DAY
     Route: 048
     Dates: start: 19970424, end: 19991031
  2. LAMIVUDINE [Suspect]
     Route: 048
     Dates: start: 19991101, end: 20030331
  3. LAMIVUDINE [Suspect]
     Dosage: 150MG TWICE PER DAY
     Route: 048
     Dates: start: 20030401, end: 20051128
  4. LAMIVUDINE [Suspect]
     Route: 048
     Dates: start: 20070111
  5. ZERIT [Suspect]
     Indication: ACQUIRED IMMUNODEFICIENCY SYNDROME
     Route: 048
     Dates: start: 19980305, end: 20040126
  6. CRIXIVAN [Suspect]
     Indication: ACQUIRED IMMUNODEFICIENCY SYNDROME
     Dosage: 800MG THREE TIMES PER DAY
     Route: 048
     Dates: start: 19960725, end: 19981223
  7. VIRACEPT [Suspect]
     Indication: ACQUIRED IMMUNODEFICIENCY SYNDROME
     Route: 048
     Dates: start: 19981224, end: 20001018
  8. ZIAGEN [Concomitant]
     Indication: ACQUIRED IMMUNODEFICIENCY SYNDROME
     Route: 048
     Dates: start: 20040127, end: 20040331
  9. ZIAGEN [Concomitant]
     Dosage: 600MG PER DAY
     Route: 048
     Dates: start: 20040401, end: 20051128
  10. ZIAGEN [Concomitant]
     Dosage: 600MG PER DAY
     Route: 048
     Dates: start: 20070111
  11. STOCRIN [Concomitant]
     Indication: ACQUIRED IMMUNODEFICIENCY SYNDROME
     Route: 048
     Dates: start: 20001019, end: 20051226
  12. STOCRIN [Concomitant]
     Route: 048
     Dates: start: 20051227
  13. BAKTAR [Concomitant]
     Indication: ANTIFUNGAL PROPHYLAXIS
     Dosage: 480MG TWICE PER DAY
     Route: 048
     Dates: start: 19981101, end: 20000126
  14. ZANTAC [Concomitant]
     Indication: STOMACH DISCOMFORT
     Dosage: 150MG TWICE PER DAY
     Dates: start: 19981101, end: 19981223
  15. URINORM [Concomitant]
     Indication: RENAL DISORDER
     Dosage: 50MG PER DAY
     Route: 048
     Dates: start: 19981101, end: 19981223
  16. URINORM [Concomitant]
     Dosage: 50MG PER DAY
     Route: 048
     Dates: start: 20000224, end: 20000621
  17. NOVACT M [Concomitant]
     Indication: FACTOR IX DEFICIENCY
     Route: 042
     Dates: start: 19981101
  18. EPZICOM [Concomitant]
     Indication: ACQUIRED IMMUNODEFICIENCY SYNDROME
     Route: 048
     Dates: start: 20051227, end: 20070110

REACTIONS (6)
  - DIABETES MELLITUS [None]
  - HYPERTENSION [None]
  - NEPHROGENIC ANAEMIA [None]
  - NEPHROPATHY [None]
  - RENAL DISORDER [None]
  - RENAL FAILURE [None]
